FAERS Safety Report 12423521 (Version 1)
Quarter: 2016Q2

REPORT INFORMATION
  Report Type: Spontaneous
  Country: US (occurrence: US)
  Receive Date: 20160601
  Receipt Date: 20160601
  Transmission Date: 20160815
  Serious: No
  Sender: FDA-Public Use
  Company Number: US-NOVEN PHARMACEUTICALS, INC.-US2015000348

PATIENT
  Age: 16 Year
  Sex: Male

DRUGS (2)
  1. METHYLPHENIDATE. [Concomitant]
     Active Substance: METHYLPHENIDATE
     Indication: PRODUCT USED FOR UNKNOWN INDICATION
     Dosage: 20 MG,BID, PATIENT USING 2 20 MG PILLS
  2. DAYTRANA [Suspect]
     Active Substance: METHYLPHENIDATE
     Indication: PRODUCT USED FOR UNKNOWN INDICATION
     Dosage: 30 MG, BID, PATIENT USING 2 30 MG DAYTRANA PATCHES EVERY DAY FOR YEARS, NOW USING ONE PATCH
     Route: 062

REACTIONS (4)
  - Wrong technique in product usage process [Unknown]
  - Insomnia [Unknown]
  - Overdose [Unknown]
  - Tic [Unknown]
